FAERS Safety Report 8001240-5 (Version None)
Quarter: 2011Q4

REPORT INFORMATION
  Report Type: 
  Country: None (occurrence: None)
  Receive Date: 20111222
  Receipt Date: 20111212
  Transmission Date: 20120403
  Serious: Yes (Hospitalization, Other)
  Sender: FDA-Public Use
  Company Number: US-ELI_LILLY_AND_COMPANY-US201111003112

PATIENT
  Sex: Female
  Weight: 63.946 kg

DRUGS (5)
  1. DILAUDID [Concomitant]
     Indication: PAIN
     Dosage: 2 MG, UNK
  2. FENTANYL [Concomitant]
     Indication: PAIN
     Dosage: 25 UG, UNK
  3. MOTRIN [Concomitant]
     Indication: PAIN
  4. LOVENOX [Concomitant]
     Dosage: 100 MG, UNK
     Route: 058
  5. GEMZAR [Suspect]
     Indication: PANCREATIC CARCINOMA
     Dosage: 1 G, ON DAY 1, 8 AND 15 OF A 21DAY CYCLE
     Route: 042
     Dates: start: 20111026, end: 20111026

REACTIONS (6)
  - WHITE BLOOD CELL COUNT INCREASED [None]
  - PULMONARY EMBOLISM [None]
  - BILE DUCT OBSTRUCTION [None]
  - PYREXIA [None]
  - COAGULOPATHY [None]
  - ABDOMINAL PAIN [None]
